FAERS Safety Report 7328299-2 (Version None)
Quarter: 2011Q1

REPORT INFORMATION
  Report Type: 
  Country: None (occurrence: None)
  Receive Date: 20110303
  Receipt Date: 20110224
  Transmission Date: 20110831
  Serious: No
  Sender: FDA-Public Use
  Company Number: US-PFIZER INC-2010180975

PATIENT
  Sex: Female
  Weight: 113.38 kg

DRUGS (6)
  1. SOMA [Concomitant]
     Dosage: UNK
  2. RELISTOR [Suspect]
     Indication: OVARIAN CANCER
     Dosage: 12 MG, 1X/DAY
     Dates: start: 20110210
  3. HYDROMORPHONE [Concomitant]
     Dosage: 8 MG, UNK
  4. PHENERGAN [Concomitant]
     Indication: NAUSEA
     Dosage: UNK
  5. MORPHINE [Concomitant]
     Dosage: 30 MG, UNK
  6. LANTUS [Concomitant]
     Indication: DIABETES MELLITUS
     Dosage: UNK

REACTIONS (1)
  - DRUG INEFFECTIVE [None]
